FAERS Safety Report 16196977 (Version 5)
Quarter: 2019Q3

REPORT INFORMATION
  Report Type: Spontaneous
  Country: US (occurrence: US)
  Receive Date: 20190415
  Receipt Date: 20190905
  Transmission Date: 20191004
  Serious: No
  Sender: FDA-Public Use
  Company Number: US-PFIZER INC-2019156163

PATIENT
  Age: 64 Year
  Sex: Female

DRUGS (1)
  1. XELJANZ XR [Suspect]
     Active Substance: TOFACITINIB CITRATE
     Dosage: 11 MG, UNK

REACTIONS (7)
  - Product dose omission [Unknown]
  - Hepatic enzyme increased [Unknown]
  - Pain [Unknown]
  - Osteoarthritis [Unknown]
  - Gait disturbance [Unknown]
  - Pollakiuria [Unknown]
  - Urinary tract infection [Recovered/Resolved]
